FAERS Safety Report 4802355-2 (Version None)
Quarter: 2005Q4

REPORT INFORMATION
  Report Type: 
  Country: None (occurrence: None)
  Receive Date: 20051012
  Receipt Date: 20050930
  Transmission Date: 20060501
  Serious: Yes (Hospitalization)
  Sender: FDA-Public Use
  Company Number: HQWYE767430SEP05

PATIENT
  Age: 73 Year
  Sex: Female

DRUGS (10)
  1. VENLAFAXINE HCL [Suspect]
     Indication: MAJOR DEPRESSION
     Dosage: 37.5 MG 1X PER 1 DAY
     Route: 048
     Dates: start: 20050920, end: 20050921
  2. GASTROM (ECABET MONOSODIUM) [Concomitant]
  3. FAMOTIDINE [Concomitant]
  4. GASMOTIN (MOSAPRIDE CITRATE) [Concomitant]
  5. PURSENNID (SENNA LEAF) [Concomitant]
  6. LENDORM [Concomitant]
  7. ZOLPIDEM TARTRATE [Concomitant]
  8. DOGMATYL (SULPIRIDE) [Concomitant]
  9. RIZE (CLOTIAZEPAM) [Concomitant]
  10. PAXIL [Concomitant]

REACTIONS (6)
  - ANOREXIA [None]
  - DRUG INEFFECTIVE [None]
  - GENERAL PHYSICAL HEALTH DETERIORATION [None]
  - INSOMNIA [None]
  - NAUSEA [None]
  - VERTIGO [None]
